FAERS Safety Report 10426826 (Version 1)
Quarter: 2014Q3

REPORT INFORMATION
  Report Type: Spontaneous
  Country: US (occurrence: None)
  Receive Date: 20140902
  Receipt Date: 20140902
  Transmission Date: 20150326
  Serious: No
  Sender: FDA-Public Use
  Company Number: None

PATIENT
  Age: 52 Year
  Sex: Female
  Weight: 72.58 kg

DRUGS (1)
  1. NITROFURANTOIN MONOHYDRATE [Suspect]
     Active Substance: NITROFURANTOIN MONOHYDRATE
     Indication: URINARY TRACT INFECTION
     Dosage: 1 PILL, TWICE DAILY, TAKEN BY MOUTH
     Route: 048
     Dates: start: 20140819, end: 20140823

REACTIONS (11)
  - Migraine [None]
  - Vomiting [None]
  - Flatulence [None]
  - Nausea [None]
  - Diarrhoea [None]
  - Arthralgia [None]
  - Headache [None]
  - Pain [None]
  - Chills [None]
  - Cystitis [None]
  - Amblyopia [None]

NARRATIVE: CASE EVENT DATE: 20140819
